FAERS Safety Report 13987499 (Version 1)
Quarter: 2017Q3

REPORT INFORMATION
  Report Type: Spontaneous
  Country: MX (occurrence: MX)
  Receive Date: 20170919
  Receipt Date: 20170919
  Transmission Date: 20171128
  Serious: Yes (Other)
  Sender: FDA-Public Use
  Company Number: MX-PFIZER INC-2017404943

PATIENT
  Age: 54 Year
  Sex: Female

DRUGS (1)
  1. ALDACTONE [Suspect]
     Active Substance: SPIRONOLACTONE
     Dosage: 25 MG, ALTERNATE DAY

REACTIONS (2)
  - Cardiac disorder [Not Recovered/Not Resolved]
  - Foot amputation [Not Recovered/Not Resolved]
